FAERS Safety Report 14694652 (Version 1)
Quarter: 2018Q1

REPORT INFORMATION
  Report Type: Spontaneous
  Country: MY (occurrence: MY)
  Receive Date: 20180329
  Receipt Date: 20180329
  Transmission Date: 20180509
  Serious: Yes (Other)
  Sender: FDA-Public Use
  Company Number: MY-BAYER-2018-057933

PATIENT
  Age: 32 Year
  Sex: Female

DRUGS (9)
  1. CLARITHROMYCIN. [Concomitant]
     Active Substance: CLARITHROMYCIN
     Route: 048
  2. CARDIPRIN (ACETYLSALICYLIC ACID) [Concomitant]
     Active Substance: ASPIRIN
     Dosage: 100 MG, UNK
  3. HYDROXYCHLOROQUINE [Concomitant]
     Active Substance: HYDROXYCHLOROQUINE
     Dosage: 200 MG, UNK
  4. TINZAPARIN [Concomitant]
     Active Substance: TINZAPARIN
     Dosage: 3500 IU, UNK
     Route: 058
  5. PREDNISOLONE. [Concomitant]
     Active Substance: PREDNISOLONE
     Dosage: 1 UNK, UNK
     Route: 048
  6. CIPROFLOXACIN MONOHYDROCHLORIDE [Suspect]
     Active Substance: CIPROFLOXACIN
     Indication: MYCOBACTERIUM ABSCESSUS INFECTION
  7. METHYLPREDNISOLONE. [Concomitant]
     Active Substance: METHYLPREDNISOLONE
     Dosage: 500 MG, QD
  8. MEROPENEM. [Concomitant]
     Active Substance: MEROPENEM
     Route: 042
  9. IMIPENEM [Concomitant]
     Active Substance: IMIPENEM

REACTIONS (6)
  - Incorrect drug administration duration [None]
  - Caesarean section [None]
  - Maternal exposure during pregnancy [None]
  - Premature delivery [None]
  - Contraindicated drug prescribed [None]
  - Foetal distress syndrome [None]
